FAERS Safety Report 21286531 (Version 1)
Quarter: 2022Q3

REPORT INFORMATION
  Report Type: Spontaneous
  Country: US (occurrence: None)
  Receive Date: 20220902
  Receipt Date: 20220902
  Transmission Date: 20221027
  Serious: Yes (Other)
  Sender: FDA-Public Use
  Company Number: None

PATIENT
  Age: 26 Year
  Sex: Female
  Weight: 111.37 kg

DRUGS (1)
  1. INVEGA SUSTENNA [Suspect]
     Active Substance: PALIPERIDONE PALMITATE
     Dosage: OTHER FREQUENCY : MONTHLY;?
     Route: 030
     Dates: start: 20220404

REACTIONS (5)
  - Galactorrhoea [None]
  - Symptom recurrence [None]
  - Headache [None]
  - Product substitution issue [None]
  - Therapeutic response changed [None]

NARRATIVE: CASE EVENT DATE: 20220512
